FAERS Safety Report 20548929 (Version 1)
Quarter: 2022Q1

REPORT INFORMATION
  Report Type: Spontaneous
  Country: CN (occurrence: None)
  Receive Date: 20220303
  Receipt Date: 20220303
  Transmission Date: 20220423
  Serious: Yes (Other)
  Sender: FDA-Public Use
  Company Number: CN-ROCHE-3033415

PATIENT
  Age: 44 Year
  Sex: Female

DRUGS (2)
  1. GAZYVA [Suspect]
     Active Substance: OBINUTUZUMAB
     Indication: Chronic lymphocytic leukaemia
     Dosage: 100MG ON DAY 1, 900MG ON DAY 2
     Route: 042
     Dates: start: 20220107
  2. BENDAMUSTINE [Concomitant]
     Active Substance: BENDAMUSTINE
     Indication: Chronic lymphocytic leukaemia
     Dosage: 150MG ON DAY 3, 100MG ON DAY 4
     Route: 065
     Dates: start: 20220107

REACTIONS (6)
  - Hyperpyrexia [Recovering/Resolving]
  - Chills [Recovering/Resolving]
  - Coagulopathy [Recovering/Resolving]
  - Drug-induced liver injury [Recovering/Resolving]
  - Full blood count decreased [Unknown]
  - Off label use [Unknown]
